FAERS Safety Report 11319710 (Version 2)
Quarter: 2015Q4

REPORT INFORMATION
  Report Type: Spontaneous
  Country: BR (occurrence: BR)
  Receive Date: 20150729
  Receipt Date: 20151228
  Transmission Date: 20160304
  Serious: Yes (Other)
  Sender: FDA-Public Use
  Company Number: BR-ROCHE-1610789

PATIENT
  Sex: Female

DRUGS (2)
  1. RIVOTRIL [Suspect]
     Active Substance: CLONAZEPAM
     Indication: DEPRESSION
     Route: 065
  2. RIVOTRIL [Suspect]
     Active Substance: CLONAZEPAM
     Indication: INSOMNIA

REACTIONS (11)
  - Osteopenia [Unknown]
  - Osteoporosis [Unknown]
  - Insomnia [Unknown]
  - Glaucoma [Unknown]
  - Nervousness [Not Recovered/Not Resolved]
  - Headache [Recovered/Resolved]
  - Osteoarthritis [Unknown]
  - Psychiatric symptom [Unknown]
  - Self-medication [Unknown]
  - Apathy [Not Recovered/Not Resolved]
  - Wrong technique in product usage process [Unknown]
